FAERS Safety Report 14262524 (Version 1)
Quarter: 2017Q4

REPORT INFORMATION
  Report Type: Report from Study
  Country: US (occurrence: US)
  Receive Date: 20171208
  Receipt Date: 20171208
  Transmission Date: 20180321
  Serious: No
  Sender: FDA-Public Use
  Company Number: US-KYOWAKIRIN-2017BKK002639

PATIENT

DRUGS (1)
  1. GRANISETRON [Suspect]
     Active Substance: GRANISETRON
     Indication: NAUSEA
     Dosage: 1 PATCH, LEAVE ON FOR 7 DAYS
     Route: 062

REACTIONS (4)
  - Inappropriate schedule of drug administration [Recovered/Resolved]
  - Nausea [Unknown]
  - Dyspnoea [Unknown]
  - Malaise [Unknown]
